FAERS Safety Report 16799362 (Version 1)
Quarter: 2019Q3

REPORT INFORMATION
  Report Type: Spontaneous
  Country: GB (occurrence: GB)
  Receive Date: 20190912
  Receipt Date: 20190912
  Transmission Date: 20191005
  Serious: Yes (Death, Other)
  Sender: FDA-Public Use
  Company Number: GB-MYLANLABS-2019M1085844

PATIENT
  Age: 12 Year
  Sex: Female

DRUGS (1)
  1. TRAMADOL. [Suspect]
     Active Substance: TRAMADOL
     Indication: MALAISE
     Dosage: UNK

REACTIONS (3)
  - Overdose [Not Recovered/Not Resolved]
  - Death [Fatal]
  - Prescription drug used without a prescription [Not Recovered/Not Resolved]
